FAERS Safety Report 15113836 (Version 1)
Quarter: 2018Q2

REPORT INFORMATION
  Report Type: Spontaneous
  Country: US (occurrence: US)
  Receive Date: 20180612
  Receipt Date: 20180612
  Transmission Date: 20180711
  Serious: No
  Sender: FDA-Public Use
  Company Number: None

PATIENT
  Age: 68 Year
  Sex: Female
  Weight: 63 kg

DRUGS (7)
  1. MIRALAX [Concomitant]
     Active Substance: POLYETHYLENE GLYCOL 3350
  2. PROLIA [Suspect]
     Active Substance: DENOSUMAB
     Indication: OSTEOPOROSIS
  3. LINZESS [Concomitant]
     Active Substance: LINACLOTIDE
  4. VITAMIN D PROBIOTIC [Concomitant]
  5. ANTIHISTAMINE [Concomitant]
     Active Substance: ANTIHISTAMINES NOS
  6. MULTIVITAMIN [Concomitant]
     Active Substance: VITAMINS
  7. CALCIUM [Concomitant]
     Active Substance: CALCIUM

REACTIONS (4)
  - Back pain [None]
  - Pain in extremity [None]
  - Pain in jaw [None]
  - Dyspnoea [None]

NARRATIVE: CASE EVENT DATE: 20180601
